FAERS Safety Report 7433306-2 (Version None)
Quarter: 2011Q2

REPORT INFORMATION
  Report Type: 
  Country: None (occurrence: None)
  Receive Date: 20110422
  Receipt Date: 20110413
  Transmission Date: 20111010
  Serious: Yes (Hospitalization, Other)
  Sender: FDA-Public Use
  Company Number: IE-ELI_LILLY_AND_COMPANY-IE201104004179

PATIENT
  Sex: Female

DRUGS (11)
  1. LIPITOR [Concomitant]
  2. DEXAMETHASONE [Concomitant]
  3. PRILOSEC [Concomitant]
  4. FOLIC ACID [Concomitant]
  5. METHOTREXATE [Concomitant]
     Route: 058
  6. AMITRIPTYLINE HCL [Concomitant]
  7. FORTEO [Suspect]
     Indication: OSTEOPOROSIS
     Dosage: 20 UG, UNK
     Dates: start: 20110330
  8. SEPTRA [Concomitant]
  9. ELTROXIN [Concomitant]
  10. CIPRAMIL [Concomitant]
  11. RITUXIMAB [Concomitant]

REACTIONS (1)
  - DEEP VEIN THROMBOSIS [None]
